FAERS Safety Report 9697265 (Version 1)
Quarter: 2013Q4

REPORT INFORMATION
  Report Type: Spontaneous
  Country: US (occurrence: None)
  Receive Date: 20131119
  Receipt Date: 20131119
  Transmission Date: 20140711
  Serious: No
  Sender: FDA-Public Use
  Company Number: None

PATIENT
  Age: 58 Year
  Sex: Male

DRUGS (1)
  1. ZELBORAF 240MG [Suspect]
     Route: 048
     Dates: start: 20131018

REACTIONS (2)
  - Medication error [None]
  - Incorrect dose administered [None]
